FAERS Safety Report 9375239 (Version 1)
Quarter: 2013Q2

REPORT INFORMATION
  Report Type: Spontaneous
  Country: GB (occurrence: GB)
  Receive Date: 20130628
  Receipt Date: 20130628
  Transmission Date: 20140414
  Serious: Yes (Other)
  Sender: FDA-Public Use
  Company Number: GB-UCBSA-071240

PATIENT
  Age: 43 Year
  Sex: Female

DRUGS (3)
  1. CIMZIA [Suspect]
     Indication: RHEUMATOID ARTHRITIS
     Dates: start: 201106, end: 2011
  2. METHOTREXATE [Concomitant]
  3. ETANERCEPT [Concomitant]
     Dates: start: 201110

REACTIONS (2)
  - Tuberculosis [Recovering/Resolving]
  - Parotitis [Recovering/Resolving]
